FAERS Safety Report 7378162-6 (Version None)
Quarter: 2011Q1

REPORT INFORMATION
  Report Type: 
  Country: None (occurrence: None)
  Receive Date: 20110328
  Receipt Date: 20110317
  Transmission Date: 20110831
  Serious: Yes (Hospitalization, Congenital Anomaly)
  Sender: FDA-Public Use
  Company Number: A0687285A

PATIENT
  Sex: Female

DRUGS (8)
  1. MULTIVITAMIN [Concomitant]
     Dates: start: 20050101
  2. INSULIN [Concomitant]
     Route: 064
  3. DEPAKOTE [Concomitant]
     Route: 064
     Dates: start: 19940101, end: 20060101
  4. CORGARD [Concomitant]
     Dosage: 20MG PER DAY
     Route: 064
     Dates: start: 19850101, end: 20060101
  5. PRENATAL VITAMINS [Concomitant]
     Route: 064
  6. TOPAMAX [Concomitant]
     Route: 064
     Dates: start: 19940101
  7. ALEVE [Concomitant]
     Route: 064
     Dates: start: 19940101, end: 20080101
  8. PAXIL [Suspect]
     Indication: DEPRESSION
     Dosage: 20MG PER DAY
     Route: 064
     Dates: start: 19940101

REACTIONS (23)
  - AUTISM SPECTRUM DISORDER [None]
  - ATRIAL SEPTAL DEFECT [None]
  - PULMONARY VALVE INCOMPETENCE [None]
  - DEVELOPMENTAL DELAY [None]
  - VENTRICULAR SEPTAL DEFECT [None]
  - AORTIC VALVE INCOMPETENCE [None]
  - MITRAL VALVE INCOMPETENCE [None]
  - ATELECTASIS [None]
  - DRUG EXPOSURE DURING PREGNANCY [None]
  - PATENT DUCTUS ARTERIOSUS [None]
  - CYANOSIS [None]
  - BUNDLE BRANCH BLOCK RIGHT [None]
  - ENCEPHALOPATHY [None]
  - AUTISM [None]
  - CARDIAC MURMUR [None]
  - OXYGEN SATURATION DECREASED [None]
  - RIGHT VENTRICULAR HYPERTROPHY [None]
  - COORDINATION ABNORMAL [None]
  - PERICARDIAL EFFUSION [None]
  - TRICUSPID VALVE INCOMPETENCE [None]
  - FALLOT'S TETRALOGY [None]
  - PULMONARY VALVE STENOSIS CONGENITAL [None]
  - HEART VALVE INCOMPETENCE [None]
